FAERS Safety Report 7102548-8 (Version None)
Quarter: 2010Q4

REPORT INFORMATION
  Report Type: 
  Country: None (occurrence: None)
  Receive Date: 20101115
  Receipt Date: 20101108
  Transmission Date: 20110411
  Serious: Yes (Other)
  Sender: FDA-Public Use
  Company Number: US-ROCHE-740610

PATIENT
  Age: 54 Year
  Sex: Female

DRUGS (8)
  1. CEFTRIAXONE SODIUM [Suspect]
     Dosage: DAY 1
     Route: 042
  2. CEFTRIAXONE SODIUM [Interacting]
     Dosage: DAY 2
     Route: 042
  3. AZITHROMYCIN [Interacting]
     Indication: SINUSITIS
     Dosage: INTRAVENOUS, ON DAY 1 AND 2
     Route: 050
  4. AZITHROMYCIN [Interacting]
     Dosage: ORAL, ON DAYS 3 TO 9
     Route: 050
  5. TACROLIMUS [Interacting]
     Dosage: MORNING: 4 MG AND EVENING: 5 MG, ON DAYS 1 AND 2, HELD ON DAY3 EVENING
     Route: 048
  6. TACROLIMUS [Interacting]
     Dosage: ON DAY 4:EVENING,DAY 5: MORNING AND EVENING AND DAY 6:MORNING
     Route: 048
  7. TACROLIMUS [Interacting]
     Dosage: DAY 6:EVENING, DAY 7-DAY 9:MORNING AND EVENING
     Route: 048
  8. TACROLIMUS [Interacting]
     Route: 048

REACTIONS (2)
  - DRUG INTERACTION [None]
  - DRUG LEVEL INCREASED [None]
